FAERS Safety Report 17241661 (Version 1)
Quarter: 2020Q1

REPORT INFORMATION
  Report Type: Spontaneous
  Country: US (occurrence: US)
  Receive Date: 20200107
  Receipt Date: 20200107
  Transmission Date: 20200409
  Serious: No
  Sender: FDA-Public Use
  Company Number: US-MYLANLABS-2019M1131869

PATIENT
  Age: 68 Year
  Sex: Female
  Weight: 60 kg

DRUGS (1)
  1. HALCINONIDE CREAM USP [Suspect]
     Active Substance: HALCINONIDE
     Indication: DERMATITIS
     Dosage: 1 PERCENT, BID (TWICE DAILY)
     Route: 061
     Dates: start: 20191225, end: 20191225

REACTIONS (1)
  - Wrong product administered [Recovered/Resolved]

NARRATIVE: CASE EVENT DATE: 20191225
